FAERS Safety Report 24421182 (Version 1)
Quarter: 2024Q4

REPORT INFORMATION
  Report Type: Spontaneous
  Country: US (occurrence: US)
  Receive Date: 20241010
  Receipt Date: 20241010
  Transmission Date: 20250115
  Serious: Yes (Death, Life-Threatening, Hospitalization)
  Sender: ACCORD
  Company Number: US-MLMSERVICE-20240923-PI203664-00095-1

PATIENT
  Age: 62 Year
  Sex: Female

DRUGS (1)
  1. HYDROXYCHLOROQUINE [Suspect]
     Active Substance: HYDROXYCHLOROQUINE
     Indication: Chronic cutaneous lupus erythematosus
     Dosage: 200 MG TWICE DAILY

REACTIONS (4)
  - Metabolic encephalopathy [Fatal]
  - Intestinal ischaemia [Fatal]
  - Pneumatosis intestinalis [Fatal]
  - Hepatic cirrhosis [Fatal]
